FAERS Safety Report 10376177 (Version 1)
Quarter: 2014Q3

REPORT INFORMATION
  Report Type: Spontaneous
  Country: HK (occurrence: HK)
  Receive Date: 20140811
  Receipt Date: 20140811
  Transmission Date: 20150326
  Serious: Yes (Other)
  Sender: FDA-Public Use
  Company Number: HK-GLAXOSMITHKLINE-B1022273A

PATIENT

DRUGS (1)
  1. VOTRIENT [Suspect]
     Active Substance: PAZOPANIB HYDROCHLORIDE
     Indication: LUNG NEOPLASM MALIGNANT
     Route: 065

REACTIONS (3)
  - Right ventricular failure [Unknown]
  - Hypertension [Unknown]
  - Off label use [Unknown]
